FAERS Safety Report 20712877 (Version 3)
Quarter: 2022Q2

REPORT INFORMATION
  Report Type: Report from Study
  Country: CN (occurrence: None)
  Receive Date: 20220415
  Receipt Date: 20220608
  Transmission Date: 20220721
  Serious: Yes (Life-Threatening, Hospitalization)
  Sender: FDA-Public Use
  Company Number: 2022A143640

PATIENT
  Age: 26486 Day
  Sex: Male

DRUGS (20)
  1. DURVALUMAB [Suspect]
     Active Substance: DURVALUMAB
     Indication: Non-small cell lung cancer
     Route: 042
     Dates: start: 20220325, end: 20220325
  2. DURVALUMAB [Suspect]
     Active Substance: DURVALUMAB
     Indication: Non-small cell lung cancer
     Route: 042
     Dates: start: 20220401, end: 20220401
  3. CARBOPLATIN [Suspect]
     Active Substance: CARBOPLATIN
     Indication: Non-small cell lung cancer
     Route: 042
     Dates: start: 20220325, end: 20220325
  4. GEMCITABINE [Suspect]
     Active Substance: GEMCITABINE
     Indication: Non-small cell lung cancer
     Route: 042
     Dates: start: 20220325, end: 20220325
  5. GEMCITABINE [Suspect]
     Active Substance: GEMCITABINE
     Indication: Non-small cell lung cancer
     Route: 042
     Dates: start: 20220401, end: 20220401
  6. PIPERACILLIN TAZOBACTAM SODIUM [Concomitant]
     Indication: Infection
     Route: 042
     Dates: start: 20220407, end: 20220412
  7. PENICILLIN G SODIUM [Concomitant]
     Active Substance: PENICILLIN G SODIUM
     Indication: Infection
     Dosage: 80.000 10000IU DAILY
     Route: 042
     Dates: start: 20220407, end: 20220407
  8. RECOMBINANT HUMAN LNTERLEUKIN-11 FOR INJECTION [Concomitant]
     Indication: Myelosuppression
     Route: 058
     Dates: start: 20220405, end: 20220406
  9. RECOMBINANT HUMAN LNTERLEUKIN-11 FOR INJECTION [Concomitant]
     Indication: Treatment delayed
     Route: 058
     Dates: start: 20220405, end: 20220406
  10. RECOMBINANT HUMAN GRANULOCYTE-STIMULATING FACTOR INJECTION [Concomitant]
     Indication: Myelosuppression
     Dosage: 100UG/INHAL TWO TIMES A DAY
     Route: 058
     Dates: start: 20220405, end: 20220405
  11. RECOMBINANT HUMAN GRANULOCYTE-STIMULATING FACTOR INJECTION [Concomitant]
     Indication: White blood cell count decreased
     Dosage: 100UG/INHAL TWO TIMES A DAY
     Route: 058
     Dates: start: 20220405, end: 20220405
  12. RECOMBINANT HUMAN GRANULOCYTE-STIMULATING FACTOR INJECTION [Concomitant]
     Indication: White blood cell count decreased
     Dosage: 100UG/INHAL TWO TIMES A DAY
     Route: 058
     Dates: start: 20220405, end: 20220405
  13. RANITIDINE [Concomitant]
     Active Substance: RANITIDINE
     Indication: Protein total
     Route: 042
     Dates: start: 20220325, end: 20220408
  14. PALONOSETRON [Concomitant]
     Active Substance: PALONOSETRON
     Indication: Prophylaxis of nausea and vomiting
     Route: 042
     Dates: start: 20220325, end: 20220407
  15. VITAMIN C [Concomitant]
     Active Substance: ASCORBIC ACID
     Indication: Vitamin supplementation
     Route: 042
     Dates: start: 20220325, end: 20220412
  16. VITAMIN B6 [Concomitant]
     Active Substance: PYRIDOXINE HYDROCHLORIDE
     Indication: Vitamin supplementation
     Route: 042
     Dates: start: 20220325, end: 20220412
  17. LORATADINE [Concomitant]
     Active Substance: LORATADINE
     Indication: Rash
     Route: 048
     Dates: start: 20220329, end: 20220410
  18. CALAMINE LOTION [Concomitant]
     Active Substance: CALAMINE LOTION
     Indication: Rash
     Route: 003
     Dates: start: 20220401, end: 20220401
  19. CALAMINE LOTION [Concomitant]
     Active Substance: CALAMINE LOTION
     Indication: Rash
     Route: 003
     Dates: start: 20220401, end: 20220401
  20. MOMETASONE FUROATE CREAM [Concomitant]
     Indication: Rash
     Route: 003
     Dates: start: 20220403, end: 20220404

REACTIONS (1)
  - Myelosuppression [Recovered/Resolved]

NARRATIVE: CASE EVENT DATE: 20220407
